FAERS Safety Report 4431744-3 (Version None)
Quarter: 2004Q3

REPORT INFORMATION
  Report Type: 
  Country: None (occurrence: None)
  Receive Date: 20040825
  Receipt Date: 20040812
  Transmission Date: 20050211
  Serious: Yes (Hospitalization)
  Sender: FDA-Public Use
  Company Number: 200416087US

PATIENT
  Sex: Female
  Weight: 60 kg

DRUGS (5)
  1. ARAVA [Suspect]
     Indication: RHEUMATOID ARTHRITIS
     Route: 048
  2. REMICADE [Suspect]
     Indication: RHEUMATOID ARTHRITIS
     Route: 042
     Dates: start: 20030201
  3. CAPTOPRIL [Concomitant]
  4. ADVAIR DISKUS 100/50 [Concomitant]
  5. VENTOLIN [Concomitant]

REACTIONS (11)
  - CHEST PAIN [None]
  - DYSPHAGIA [None]
  - DYSPNOEA [None]
  - EOSINOPHILIA [None]
  - GRANULOMA [None]
  - LUNG ABSCESS [None]
  - LUNG NEOPLASM [None]
  - NECROSIS [None]
  - OEDEMA [None]
  - PULMONARY FIBROSIS [None]
  - PULMONARY MASS [None]
